FAERS Safety Report 10606369 (Version 1)
Quarter: 2014Q4

REPORT INFORMATION
  Report Type: Spontaneous
  Country: SG (occurrence: None)
  Receive Date: 20141121
  Receipt Date: 20141121
  Transmission Date: 20150529
  Serious: Yes (Hospitalization)
  Sender: FDA-Public Use
  Company Number: FK201405358

PATIENT
  Age: 44 Year
  Sex: Male

DRUGS (7)
  1. ORALAID (ETODOLAC) [Concomitant]
  2. INTERFERON ALFA-2B [Suspect]
     Active Substance: INTERFERON ALFA-2B
     Indication: HEPATOCELLULAR CARCINOMA
     Route: 058
     Dates: start: 20140625
  3. MORPHINE SULFATE (MORPHINE SULFATE) [Concomitant]
  4. ORALSEVEN (CLOHEX PLUS) [Concomitant]
  5. DOXORUBICIN HYDROCHLORIDE. [Suspect]
     Active Substance: DOXORUBICIN HYDROCHLORIDE
     Indication: HEPATOCELLULAR CARCINOMA
     Dosage: NOT OTHERWISE SPECIFIED
     Route: 042
     Dates: start: 20140625
  6. FLUOROURACIL (FLUOROURACIL) (FLUOROURACIL) [Suspect]
     Active Substance: FLUOROURACIL
     Indication: HEPATOCELLULAR CARCINOMA
     Dosage: CONTINOUS INFUSION
     Dates: start: 20140625
  7. OXALIPLATIN 5MG/ML CONCENTRATE FOR SOLUTION FOR INFUSION (OXALIPLATIN) (OXALIPLATIN) [Suspect]
     Active Substance: OXALIPLATIN
     Indication: HEPATOCELLULAR CARCINOMA
     Dosage: NOT OTHERWISE SPECIFIED
     Route: 042
     Dates: start: 20140625

REACTIONS (2)
  - Femur fracture [None]
  - Pathological fracture [None]

NARRATIVE: CASE EVENT DATE: 20141106
